FAERS Safety Report 9842608 (Version 2)
Quarter: 2014Q1

REPORT INFORMATION
  Report Type: Report from Study
  Country: FR (occurrence: FR)
  Receive Date: 20140124
  Receipt Date: 20140124
  Transmission Date: 20141002
  Serious: Yes (Hospitalization, Other)
  Sender: FDA-Public Use
  Company Number: FR-BRISTOL-MYERS SQUIBB COMPANY-13154182

PATIENT
  Age: 52 Year
  Sex: Male

DRUGS (3)
  1. BELATACEPT [Suspect]
     Indication: RENAL TRANSPLANT
     Route: 042
     Dates: start: 20050728
  2. VANCOMYCIN [Suspect]
     Dates: start: 20050927, end: 20051002
  3. CELLCEPT [Concomitant]
     Dates: start: 20050728, end: 20051005

REACTIONS (4)
  - Granulocytopenia [Recovered/Resolved]
  - Sepsis [Recovered/Resolved]
  - Pyelonephritis [Recovered/Resolved]
  - Vesical fistula [Recovered/Resolved]
